FAERS Safety Report 6265345-1 (Version None)
Quarter: 2009Q3

REPORT INFORMATION
  Report Type: 
  Country: None (occurrence: None)
  Receive Date: 20090709
  Receipt Date: 20090626
  Transmission Date: 20100115
  Serious: No
  Sender: FDA-Public Use
  Company Number: 2009-194116-NL

PATIENT
  Age: 56 Year
  Sex: Male

DRUGS (3)
  1. MIRTAZAPINE [Suspect]
     Indication: DEPRESSION
     Dosage: 15 MG/30 MG/7.5 MG BID
     Dates: start: 20090313, end: 20090319
  2. MIRTAZAPINE [Suspect]
     Indication: DEPRESSION
     Dosage: 15 MG/30 MG/7.5 MG BID
     Dates: start: 20090320, end: 20090329
  3. MIRTAZAPINE [Suspect]
     Indication: DEPRESSION
     Dosage: 15 MG/30 MG/7.5 MG BID
     Dates: start: 20090330, end: 20090402

REACTIONS (16)
  - CHILLS [None]
  - CONFUSIONAL STATE [None]
  - DELIRIUM [None]
  - DEPRESSED LEVEL OF CONSCIOUSNESS [None]
  - FACIAL PALSY [None]
  - FATIGUE [None]
  - FEAR OF DISEASE [None]
  - HEADACHE [None]
  - HYPERTENSION [None]
  - HYPERVENTILATION [None]
  - INSOMNIA [None]
  - MALAISE [None]
  - NAUSEA [None]
  - RESTLESSNESS [None]
  - SPEECH DISORDER [None]
  - VOMITING [None]
